FAERS Safety Report 13046122 (Version 1)
Quarter: 2016Q4

REPORT INFORMATION
  Report Type: Report from Study
  Country: US (occurrence: US)
  Receive Date: 20161220
  Receipt Date: 20161220
  Transmission Date: 20170207
  Serious: Yes (Hospitalization, Other)
  Sender: FDA-Public Use
  Company Number: US-JNJFOC-20160706835

PATIENT
  Age: 63 Year
  Sex: Male

DRUGS (13)
  1. MAGNESIUM [Concomitant]
     Active Substance: MAGNESIUM
  2. CALCITRIOL. [Concomitant]
     Active Substance: CALCITRIOL
  3. LISINOPRIL. [Concomitant]
     Active Substance: LISINOPRIL
  4. OFLOXACIN. [Concomitant]
     Active Substance: OFLOXACIN
  5. IMBRUVICA [Suspect]
     Active Substance: IBRUTINIB
     Indication: CHRONIC LYMPHOCYTIC LEUKAEMIA
     Route: 048
     Dates: start: 20160622
  6. HYDRALAZINE HCL [Concomitant]
     Active Substance: HYDRALAZINE HYDROCHLORIDE
  7. AZELASTINE [Concomitant]
     Active Substance: AZELASTINE
  8. ZOFRAN [Concomitant]
     Active Substance: ONDANSETRON HYDROCHLORIDE
  9. COREG [Concomitant]
     Active Substance: CARVEDILOL
  10. NIFEDIPINE. [Concomitant]
     Active Substance: NIFEDIPINE
  11. PROCHLORPERAZINE. [Concomitant]
     Active Substance: PROCHLORPERAZINE
  12. ALLOPURINOL. [Concomitant]
     Active Substance: ALLOPURINOL
  13. FUROSEMIDE. [Concomitant]
     Active Substance: FUROSEMIDE

REACTIONS (13)
  - Onychoclasis [Not Recovered/Not Resolved]
  - Increased tendency to bruise [Unknown]
  - Renal impairment [Recovering/Resolving]
  - Oedema peripheral [Unknown]
  - Tumour lysis syndrome [Not Recovered/Not Resolved]
  - Peripheral swelling [Not Recovered/Not Resolved]
  - Contusion [Unknown]
  - Blood uric acid increased [Recovering/Resolving]
  - Joint swelling [Not Recovered/Not Resolved]
  - Hypotension [Unknown]
  - Dizziness [Unknown]
  - Neutrophil count decreased [Unknown]
  - Nail disorder [Not Recovered/Not Resolved]

NARRATIVE: CASE EVENT DATE: 2016
